FAERS Safety Report 9364799 (Version 1)
Quarter: 2013Q2

REPORT INFORMATION
  Report Type: Spontaneous
  Country: US (occurrence: US)
  Receive Date: 20130624
  Receipt Date: 20130624
  Transmission Date: 20140414
  Serious: No
  Sender: FDA-Public Use
  Company Number: US-US-EMD SERONO, INC.-7134333

PATIENT
  Sex: Male

DRUGS (5)
  1. REBIF [Suspect]
     Indication: MULTIPLE SCLEROSIS
     Route: 058
     Dates: start: 20120508
  2. PREDNISONE [Concomitant]
     Indication: BLINDNESS UNILATERAL
     Route: 048
  3. PREDNISONE [Concomitant]
     Indication: VISION BLURRED
  4. SOLU-MEDROL [Concomitant]
     Indication: BLINDNESS UNILATERAL
  5. SOLU-MEDROL [Concomitant]
     Indication: VISION BLURRED

REACTIONS (1)
  - Bowel movement irregularity [Recovered/Resolved]
